FAERS Safety Report 9633126 (Version 2)
Quarter: 2013Q4

REPORT INFORMATION
  Report Type: Report from Study
  Country: FR (occurrence: FR)
  Receive Date: 20131019
  Receipt Date: 20131101
  Transmission Date: 20140711
  Serious: Yes (Death)
  Sender: FDA-Public Use
  Company Number: FR-ROCHE-1291420

PATIENT
  Age: 52 Year
  Sex: Male

DRUGS (2)
  1. ZELBORAF [Suspect]
     Indication: SALIVARY GLAND CANCER
     Dosage: 4 DF
     Route: 048
     Dates: start: 20130216, end: 20130424
  2. ZELBORAF [Suspect]
     Indication: HEPATIC CANCER

REACTIONS (2)
  - Disease progression [Fatal]
  - Photosensitivity reaction [Unknown]
